FAERS Safety Report 8282686 (Version 3)
Quarter: 2012Q4

REPORT INFORMATION
  Report Type: Report from Study
  Country: JP (occurrence: JP)
  Receive Date: 20111209
  Receipt Date: 20121112
  Transmission Date: 20130627
  Serious: Yes (Hospitalization)
  Sender: FDA-Public Use
  Company Number: JP-ROCHE-1009763

PATIENT
  Age: 5 Year
  Sex: Female
  Weight: 15 kg

DRUGS (33)
  1. TOCILIZUMAB [Suspect]
     Indication: JUVENILE ARTHRITIS
     Route: 041
     Dates: start: 20100121, end: 20100415
  2. TOCILIZUMAB [Suspect]
     Indication: JUVENILE ARTHRITIS
     Route: 041
     Dates: start: 20100511, end: 20100610
  3. TOCILIZUMAB [Suspect]
     Indication: JUVENILE ARTHRITIS
     Route: 041
     Dates: start: 20100708, end: 20100805
  4. TOCILIZUMAB [Suspect]
     Indication: JUVENILE ARTHRITIS
     Route: 041
     Dates: start: 20100902, end: 20110218
  5. TOCILIZUMAB [Suspect]
     Indication: JUVENILE ARTHRITIS
     Route: 041
     Dates: start: 20110310, end: 20110916
  6. TOCILIZUMAB [Suspect]
     Indication: JUVENILE ARTHRITIS
     Route: 041
     Dates: start: 20111007, end: 20111007
  7. TOCILIZUMAB [Suspect]
     Indication: JUVENILE ARTHRITIS
     Route: 041
     Dates: start: 20111104, end: 20111125
  8. TOCILIZUMAB [Suspect]
     Indication: JUVENILE ARTHRITIS
     Route: 041
     Dates: start: 20111209, end: 20111209
  9. TOCILIZUMAB [Suspect]
     Indication: JUVENILE ARTHRITIS
     Route: 041
     Dates: start: 20111216, end: 20120106
  10. TOCILIZUMAB [Suspect]
     Indication: JUVENILE ARTHRITIS
     Route: 041
     Dates: start: 20120120, end: 20120427
  11. TOCILIZUMAB [Suspect]
     Indication: JUVENILE ARTHRITIS
     Route: 041
  12. BRUFEN [Concomitant]
     Indication: JUVENILE ARTHRITIS
     Route: 048
     Dates: start: 20090428, end: 201002
  13. BRUFEN [Concomitant]
     Indication: JUVENILE ARTHRITIS
     Route: 048
     Dates: start: 20120427
  14. PREDNISOLONE [Concomitant]
     Indication: JUVENILE ARTHRITIS
     Route: 048
     Dates: start: 20090524, end: 20090710
  15. PREDNISOLONE [Concomitant]
     Indication: JUVENILE ARTHRITIS
     Route: 048
     Dates: start: 20090711, end: 20090722
  16. PREDNISOLONE [Concomitant]
     Indication: JUVENILE ARTHRITIS
     Route: 048
     Dates: start: 20090723, end: 20090916
  17. PREDNISOLONE [Concomitant]
     Indication: JUVENILE ARTHRITIS
     Route: 048
     Dates: start: 20090917, end: 20091027
  18. PREDNISOLONE [Concomitant]
     Indication: JUVENILE ARTHRITIS
     Route: 048
     Dates: start: 20091030, end: 20091112
  19. PREDNISOLONE [Concomitant]
     Indication: JUVENILE ARTHRITIS
     Route: 048
     Dates: start: 20091113, end: 2010
  20. PREDNISOLONE [Concomitant]
     Indication: JUVENILE ARTHRITIS
     Route: 048
     Dates: start: 201011, end: 20111028
  21. PREDNISOLONE [Concomitant]
     Indication: JUVENILE ARTHRITIS
     Route: 048
     Dates: start: 20111111, end: 20111116
  22. PREDNISOLONE [Concomitant]
     Indication: JUVENILE ARTHRITIS
     Route: 048
     Dates: start: 20111117, end: 20111221
  23. PREDNISOLONE [Concomitant]
     Indication: JUVENILE ARTHRITIS
     Route: 048
     Dates: start: 20111222, end: 20120119
  24. PREDNISOLONE [Concomitant]
     Indication: JUVENILE ARTHRITIS
     Route: 048
     Dates: start: 20120120, end: 20120229
  25. PREDNISOLONE [Concomitant]
     Indication: JUVENILE ARTHRITIS
     Route: 048
     Dates: start: 20120301, end: 20120315
  26. PREDNISOLONE [Concomitant]
     Indication: JUVENILE ARTHRITIS
     Route: 048
     Dates: start: 20120316, end: 20120329
  27. PREDNISOLONE [Concomitant]
     Indication: JUVENILE ARTHRITIS
     Route: 048
     Dates: start: 20120330, end: 20120410
  28. PREDNISOLONE [Concomitant]
     Indication: JUVENILE ARTHRITIS
     Route: 048
     Dates: start: 20120411, end: 20120426
  29. PREDNISOLONE [Concomitant]
     Indication: JUVENILE ARTHRITIS
     Route: 048
     Dates: start: 20120427
  30. METHOTREXATE [Concomitant]
     Indication: JUVENILE ARTHRITIS
     Route: 048
     Dates: start: 200912
  31. FOLIAMIN [Concomitant]
     Indication: JUVENILE ARTHRITIS
     Route: 048
     Dates: start: 200912
  32. ONON [Concomitant]
     Indication: ASTHMA
     Route: 048
     Dates: start: 20110106
  33. ALFAROL [Concomitant]
     Indication: JUVENILE ARTHRITIS
     Route: 048
     Dates: start: 20111222

REACTIONS (4)
  - Juvenile idiopathic arthritis [Recovering/Resolving]
  - None [Recovering/Resolving]
  - Arthritis [Unknown]
  - Condition aggravated [None]
